FAERS Safety Report 11083096 (Version 2)
Quarter: 2016Q1

REPORT INFORMATION
  Report Type: Spontaneous
  Country: US (occurrence: US)
  Receive Date: 20150501
  Receipt Date: 20160307
  Transmission Date: 20160525
  Serious: No
  Sender: FDA-Public Use
  Company Number: US-PFIZER INC-2015145320

PATIENT
  Age: 51 Year
  Sex: Female

DRUGS (4)
  1. LORAZEPAM. [Suspect]
     Active Substance: LORAZEPAM
     Indication: DEPRESSION
     Dosage: 0.5 MG, AS NEEDED (DAILY)
     Dates: start: 20150922
  2. EFFEXOR XR [Suspect]
     Active Substance: VENLAFAXINE HYDROCHLORIDE
     Indication: ANXIETY
     Dosage: 75 MG, 2X/DAY
     Dates: start: 20150227
  3. LORAZEPAM. [Suspect]
     Active Substance: LORAZEPAM
     Indication: ANXIETY
     Dosage: 0.5 MG, AS NEEDED (1 TABLET DAILY AS NEEDED)
     Dates: start: 20150227
  4. EFFEXOR XR [Suspect]
     Active Substance: VENLAFAXINE HYDROCHLORIDE
     Indication: DEPRESSION
     Dosage: 75 MG, 2X/DAY
     Dates: start: 20150817

REACTIONS (2)
  - Hypertriglyceridaemia [Unknown]
  - Dermatitis [Unknown]
